FAERS Safety Report 5263426-2 (Version None)
Quarter: 2007Q1

REPORT INFORMATION
  Report Type: 
  Country: None (occurrence: None)
  Receive Date: 20070313
  Receipt Date: 20070301
  Transmission Date: 20070707
  Serious: Yes (Disabling)
  Sender: FDA-Public Use
  Company Number: 2007SE01228

PATIENT
  Age: 21069 Day
  Sex: Female

DRUGS (10)
  1. RHINOCORT [Suspect]
     Indication: RHINITIS ALLERGIC
     Dosage: 1 DOSE 1-2 TIMES PER DAY
     Route: 045
     Dates: start: 19890101
  2. BECLOMETHASONE DIPROPIONATE [Suspect]
     Indication: ASTHMA
     Dosage: 2 DOSES + 1-2 DOSES PER DAY
     Route: 055
     Dates: start: 19890101
  3. PREDNISOLONE [Suspect]
     Indication: ASTHMA
     Dosage: A COUPLE OF TIMES A YEAR
     Route: 048
     Dates: start: 19890101
  4. NORVASC [Concomitant]
     Indication: BLOOD PRESSURE
     Route: 048
     Dates: start: 20030101
  5. EMCONCOR [Concomitant]
     Indication: BLOOD PRESSURE
     Dosage: 1+?
     Route: 048
     Dates: start: 20040101
  6. EMCONCOR [Concomitant]
     Indication: CARDIAC DISORDER
     Dosage: 1+?
     Route: 048
     Dates: start: 20040101
  7. COZAAR [Concomitant]
     Indication: BLOOD PRESSURE
     Route: 048
     Dates: start: 20050101
  8. COZAAR [Concomitant]
     Indication: CARDIAC DISORDER
     Route: 048
     Dates: start: 20050101
  9. TRIPTYL [Concomitant]
     Indication: PAIN
     Route: 048
     Dates: start: 20030101
  10. PRIMASPAN [Concomitant]
     Indication: CARDIAC DISORDER
     Route: 048
     Dates: start: 20050101

REACTIONS (1)
  - SKIN ATROPHY [None]
